FAERS Safety Report 16025797 (Version 1)
Quarter: 2019Q1

REPORT INFORMATION
  Report Type: Spontaneous
  Country: ES (occurrence: ES)
  Receive Date: 20190302
  Receipt Date: 20190302
  Transmission Date: 20190418
  Serious: Yes (Hospitalization)
  Sender: FDA-Public Use
  Company Number: ES-ACCORD-110204

PATIENT
  Age: 54 Year
  Sex: Female

DRUGS (5)
  1. IMUREL [Concomitant]
     Active Substance: AZATHIOPRINE SODIUM
     Indication: HEPATIC CIRRHOSIS
     Dosage: STRENGTH 50 MG
     Route: 048
     Dates: start: 20170511, end: 20180201
  2. URSOCHOL [Concomitant]
     Active Substance: URSODIOL
     Indication: HEPATIC CIRRHOSIS
     Dosage: STRENGTH 150 MG
     Route: 048
     Dates: start: 20170511, end: 20180201
  3. MYCOPHENOLIC ACID. [Suspect]
     Active Substance: MYCOPHENOLIC ACID
     Indication: LIVER TRANSPLANT
     Route: 048
     Dates: start: 20180202
  4. TACROLIMUS. [Interacting]
     Active Substance: TACROLIMUS
     Indication: LIVER TRANSPLANT
     Route: 048
     Dates: start: 20180202
  5. PREDNISONE. [Interacting]
     Active Substance: PREDNISONE
     Indication: HEPATIC CIRRHOSIS
     Dosage: 20 MG DOSE FROM 02-FEB-2018 TAKEN (DOSE NOT CHANGED)
     Route: 048
     Dates: start: 20170511, end: 20180201

REACTIONS (2)
  - Venoocclusive liver disease [Recovering/Resolving]
  - Drug interaction [Unknown]

NARRATIVE: CASE EVENT DATE: 20180316
